FAERS Safety Report 8098746-X (Version None)
Quarter: 2012Q1

REPORT INFORMATION
  Report Type: 
  Country: None (occurrence: None)
  Receive Date: 20120131
  Receipt Date: 20120117
  Transmission Date: 20120608
  Serious: Yes (Death)
  Sender: FDA-Public Use
  Company Number: US-ACTELION-A-NJ2011-53008

PATIENT

DRUGS (16)
  1. PROBIOTIC [Concomitant]
  2. LESCOL [Concomitant]
  3. LEVOTHYROXINE SODIUM [Concomitant]
  4. PRILOSEC [Concomitant]
  5. VITAMIN D [Concomitant]
  6. KLOR-CON [Concomitant]
  7. FISH OIL [Concomitant]
  8. LASIX [Concomitant]
  9. TRACLEER [Suspect]
     Indication: PULMONARY HYPERTENSION
     Dosage: 62.5 MG, BID
     Route: 048
     Dates: start: 20110817, end: 20120117
  10. CALCIUM MAGNESIUM [Concomitant]
  11. IRON [Concomitant]
  12. CARDIZEM [Concomitant]
  13. LABETALOL HCL [Concomitant]
  14. STOOL SOFTENER [Concomitant]
  15. MINOCYCLINE HCL [Concomitant]
  16. MULTI-VITAMIN [Concomitant]

REACTIONS (4)
  - DEATH [None]
  - SWELLING [None]
  - FLUID RETENTION [None]
  - CONDITION AGGRAVATED [None]
